FAERS Safety Report 9123108 (Version 1)
Quarter: 2013Q1

REPORT INFORMATION
  Report Type: Spontaneous
  Country: US (occurrence: None)
  Receive Date: 20130225
  Receipt Date: 20130225
  Transmission Date: 20140127
  Serious: Yes (Life-Threatening, Other)
  Sender: FDA-Public Use
  Company Number: None

PATIENT
  Age: 39 Year
  Sex: Male
  Weight: 88.45 kg

DRUGS (3)
  1. LAMOTRIGINE [Suspect]
     Indication: BIPOLAR DISORDER
     Dosage: 150 MG. 2 X DAILY PO
     Route: 048
     Dates: start: 20090901, end: 20130108
  2. LAMICTAL [Suspect]
     Dosage: 62.5 MG. 1X DAILY PO
     Route: 048
     Dates: start: 20130108, end: 20130208
  3. QUETIAPINE [Concomitant]

REACTIONS (4)
  - Cognitive disorder [None]
  - Depression [None]
  - Aggression [None]
  - Product substitution issue [None]
